FAERS Safety Report 7992396-9 (Version None)
Quarter: 2011Q4

REPORT INFORMATION
  Report Type: 
  Country: None (occurrence: None)
  Receive Date: 20111219
  Receipt Date: 20101103
  Transmission Date: 20120403
  Serious: No
  Sender: FDA-Public Use
  Company Number: US-ASTRAZENECA-2010SE52393

PATIENT
  Age: 64 Year
  Sex: Male
  Weight: 92.5 kg

DRUGS (4)
  1. BLOOD PRESSURE MEDICATIONS [Concomitant]
  2. ALLOPURINOL [Concomitant]
  3. LEVOTHYROXINE SODIUM [Concomitant]
  4. CRESTOR [Suspect]
     Indication: HYPERCHOLESTEROLAEMIA
     Route: 048

REACTIONS (2)
  - BLOOD URIC ACID DECREASED [None]
  - VITAMIN D DEFICIENCY [None]
